FAERS Safety Report 4311748-1 (Version None)
Quarter: 2004Q1

REPORT INFORMATION
  Report Type: 
  Country: None (occurrence: None)
  Receive Date: 20040304
  Receipt Date: 20040304
  Transmission Date: 20041129
  Serious: Yes (Life-Threatening, Hospitalization)
  Sender: FDA-Public Use
  Company Number: None

PATIENT
  Age: 83 Year
  Sex: Female
  Weight: 59.8748 kg

DRUGS (1)
  1. VIOXX [Suspect]
     Indication: ARTHRITIS
     Dosage: ORAL
     Route: 048
     Dates: start: 20031219, end: 20031228

REACTIONS (18)
  - AMNESIA [None]
  - ASTHENIA [None]
  - BODY TEMPERATURE DECREASED [None]
  - CONFUSIONAL STATE [None]
  - DEHYDRATION [None]
  - DEMENTIA [None]
  - DEPRESSION [None]
  - DIARRHOEA [None]
  - DIZZINESS [None]
  - DYSARTHRIA [None]
  - DYSPEPSIA [None]
  - ERYTHEMA OF EYELID [None]
  - EYELID PAIN [None]
  - FEELING ABNORMAL [None]
  - HEADACHE [None]
  - MARKEDLY REDUCED DIETARY INTAKE [None]
  - PHOTOPHOBIA [None]
  - WEIGHT DECREASED [None]
